FAERS Safety Report 10175963 (Version 1)
Quarter: 2014Q2

REPORT INFORMATION
  Report Type: Spontaneous
  Country: US (occurrence: None)
  Receive Date: 20140515
  Receipt Date: 20140515
  Transmission Date: 20141212
  Serious: Yes (Hospitalization)
  Sender: FDA-Public Use
  Company Number: None

PATIENT
  Age: 56 Year
  Sex: Female

DRUGS (10)
  1. FORTEO [Suspect]
     Indication: PRODUCT USED FOR UNKNOWN INDICATION
     Dosage: SUB Q
     Dates: start: 20131106
  2. PEPCID AC [Concomitant]
  3. METFORMIN [Concomitant]
  4. SINGULAIR [Concomitant]
  5. ASPIRIN 81 [Concomitant]
  6. LETHARTEN [Concomitant]
  7. MULTI VITAMIN [Concomitant]
  8. FISH OIL [Concomitant]
  9. CMP BUY [Concomitant]
  10. ADVAIR [Concomitant]

REACTIONS (3)
  - Memory impairment [None]
  - Drug dose omission [None]
  - Weight decreased [None]
